FAERS Safety Report 9047573 (Version 2)
Quarter: 2013Q1

REPORT INFORMATION
  Report Type: Spontaneous
  Country: US (occurrence: US)
  Receive Date: 20130204
  Receipt Date: 20130305
  Transmission Date: 20140127
  Serious: No
  Sender: FDA-Public Use
  Company Number: US-AMGEN-USASP2013004547

PATIENT
  Age: 60 Year
  Sex: Male

DRUGS (3)
  1. ENBREL [Suspect]
     Indication: PSORIASIS
     Dosage: 50 MG, 2 TIMES/WK
     Route: 058
     Dates: start: 20120926
  2. ENBREL [Suspect]
     Indication: PSORIATIC ARTHROPATHY
  3. HCT [Concomitant]
     Indication: HYPERTENSION
     Dosage: UNK
     Route: 048

REACTIONS (2)
  - Back pain [Recovered/Resolved]
  - Chest pain [Not Recovered/Not Resolved]
